FAERS Safety Report 6235502-9 (Version None)
Quarter: 2009Q2

REPORT INFORMATION
  Report Type: 
  Country: None (occurrence: None)
  Receive Date: 20090616
  Receipt Date: 20090612
  Transmission Date: 20091009
  Serious: Yes (Other)
  Sender: FDA-Public Use
  Company Number: 2009SP012439

PATIENT
  Age: 61 Year
  Sex: Male
  Weight: 68.9 kg

DRUGS (15)
  1. PEG-INTRON [Suspect]
     Indication: HEPATITIS C
     Dosage: 100 MCG, QW, SC; 50 MCG, QW; SC
     Route: 058
     Dates: start: 20090120, end: 20090224
  2. PEG-INTRON [Suspect]
     Indication: HEPATITIS C
     Dosage: 100 MCG, QW, SC; 50 MCG, QW; SC
     Route: 058
     Dates: start: 20090225, end: 20090603
  3. RIBAVIRIN [Suspect]
     Indication: HEPATITIS C
     Dosage: 800 MG,QD;PO; 600 MG,QD;PO, 200 MG,QD, PO; 400 MG,QD,PO
     Route: 048
     Dates: start: 20090120, end: 20090324
  4. RIBAVIRIN [Suspect]
     Indication: HEPATITIS C
     Dosage: 800 MG,QD;PO; 600 MG,QD;PO, 200 MG,QD, PO; 400 MG,QD,PO
     Route: 048
     Dates: start: 20090325, end: 20090407
  5. RIBAVIRIN [Suspect]
     Indication: HEPATITIS C
     Dosage: 800 MG,QD;PO; 600 MG,QD;PO, 200 MG,QD, PO; 400 MG,QD,PO
     Route: 048
     Dates: start: 20090408, end: 20090429
  6. RIBAVIRIN [Suspect]
     Indication: HEPATITIS C
     Dosage: 800 MG,QD;PO; 600 MG,QD;PO, 200 MG,QD, PO; 400 MG,QD,PO
     Route: 048
     Dates: start: 20090430, end: 20090610
  7. MP-424 (INVESTIGATIONAL DRUG) [Suspect]
     Indication: HEPATITIS C
     Dosage: 2250 MG; QD; PO
     Route: 048
     Dates: start: 20090120, end: 20090401
  8. URSO 250 [Concomitant]
  9. AMLODIPINE [Concomitant]
  10. LOXONIN [Concomitant]
  11. MUCOSTA [Concomitant]
  12. PARIET [Concomitant]
  13. PROMAC [Concomitant]
  14. MYSLEE [Concomitant]
  15. BIOFERMIN [Concomitant]

REACTIONS (4)
  - ADENOCARCINOMA [None]
  - AGRANULOCYTOSIS [None]
  - BONE MARROW FAILURE [None]
  - GASTRIC CANCER [None]
